FAERS Safety Report 4985786-X (Version None)
Quarter: 2006Q2

REPORT INFORMATION
  Report Type: 
  Country: None (occurrence: None)
  Receive Date: 20060428
  Receipt Date: 20060421
  Transmission Date: 20061013
  Serious: Yes (Other)
  Sender: FDA-Public Use
  Company Number: AU-BRISTOL-MYERS SQUIBB COMPANY-13353354

PATIENT
  Age: 67 Year
  Sex: Male
  Weight: 88 kg

DRUGS (5)
  1. TEQUIN [Suspect]
     Route: 042
     Dates: start: 20011224, end: 20011225
  2. MEROPENEM [Suspect]
     Route: 042
     Dates: end: 20010129
  3. MAGMIN [Suspect]
     Route: 048
     Dates: start: 20011217
  4. SOMAC [Concomitant]
  5. DIAMICRON [Concomitant]
     Indication: DIABETES MELLITUS
     Route: 048

REACTIONS (2)
  - HYPERHIDROSIS [None]
  - HYPOGLYCAEMIA [None]
